FAERS Safety Report 13372339 (Version 1)
Quarter: 2017Q1

REPORT INFORMATION
  Report Type: Spontaneous
  Country: US (occurrence: US)
  Receive Date: 20170327
  Receipt Date: 20170327
  Transmission Date: 20170429
  Serious: Yes (Hospitalization)
  Sender: FDA-Public Use
  Company Number: US-ACCORD-049401

PATIENT
  Age: 31 Year
  Sex: Female

DRUGS (2)
  1. FOLINIC ACID [Concomitant]
     Active Substance: LEUCOVORIN
     Dosage: 0.1 MG/KG WAS ADMINISTERED ON DAYS 2, 4, 6, AND 8
  2. METHOTREXATE. [Suspect]
     Active Substance: METHOTREXATE
     Indication: ECTOPIC PREGNANCY
     Dosage: 1 MG/KG WAS ADMINISTERED ON DAYS 1, 3, 5, AND 7

REACTIONS (2)
  - Treatment failure [Unknown]
  - Off label use [Unknown]
